FAERS Safety Report 22915966 (Version 3)
Quarter: 2023Q4

REPORT INFORMATION
  Report Type: Report from Study
  Country: CA (occurrence: CA)
  Receive Date: 20230907
  Receipt Date: 20231016
  Transmission Date: 20240110
  Serious: Yes (Hospitalization, Other)
  Sender: FDA-Public Use
  Company Number: CA-TAKEDA-2023TUS086635

PATIENT
  Age: 16 Year
  Sex: Male

DRUGS (7)
  1. VEDOLIZUMAB [Suspect]
     Active Substance: VEDOLIZUMAB
     Indication: Crohn^s disease
     Dosage: 300 MILLIGRAM
     Route: 042
     Dates: start: 20161019
  2. VEDOLIZUMAB [Suspect]
     Active Substance: VEDOLIZUMAB
     Dosage: 300 MILLIGRAM, Q4WEEKS
     Route: 042
     Dates: start: 20161229
  3. VEDOLIZUMAB [Suspect]
     Active Substance: VEDOLIZUMAB
     Dosage: 300 MILLIGRAM, Q4WEEKS
     Route: 042
  4. EBASTINE [Concomitant]
     Active Substance: EBASTINE
     Indication: Multiple allergies
     Dosage: UNK
  5. URSODIOL [Concomitant]
     Active Substance: URSODIOL
     Indication: Autoimmune hepatitis
     Dosage: 500 MILLIGRAM, BID
     Route: 048
  6. FENOFIBRATE [Concomitant]
     Active Substance: FENOFIBRATE
     Indication: Cholangitis sclerosing
     Dosage: 160 MILLIGRAM, QD
     Route: 048
  7. MYCOPHENOLIC ACID [Concomitant]
     Active Substance: MYCOPHENOLIC ACID
     Indication: Autoimmune hepatitis
     Dosage: 750 MILLIGRAM, BID
     Route: 048

REACTIONS (4)
  - Pancreatitis acute [Recovering/Resolving]
  - Postoperative abscess [Recovering/Resolving]
  - Off label use [Unknown]
  - Product use issue [Unknown]

NARRATIVE: CASE EVENT DATE: 20161229
